FAERS Safety Report 10065460 (Version 2)
Quarter: 2014Q2

REPORT INFORMATION
  Report Type: Spontaneous
  Country: FR (occurrence: FR)
  Receive Date: 20140408
  Receipt Date: 20140613
  Transmission Date: 20141212
  Serious: Yes (Other)
  Sender: FDA-Public Use
  Company Number: FR-PFIZER INC-2014098235

PATIENT
  Age: 84 Year
  Sex: Male

DRUGS (15)
  1. EUPANTOL [Suspect]
     Dosage: UNK
     Route: 042
     Dates: start: 2014, end: 20140213
  2. VANCOMYCIN HYDROCHLORIDE [Concomitant]
     Dosage: UNK
     Dates: start: 20140210
  3. PIPERACILLIN SODIUM W/TAZOBACTAM SODIUM [Concomitant]
  4. GENTAMICINE [Concomitant]
     Dosage: UNK
     Dates: start: 20140209
  5. CALCIPARIN [Concomitant]
     Dosage: UNK
     Dates: end: 20140209
  6. INEXIUM /01479302/ [Concomitant]
     Dosage: UNK
  7. TEMERIT [Concomitant]
     Dosage: UNK
  8. TAZOCILLINE [Concomitant]
     Dosage: UNK
     Dates: start: 20140209
  9. PRIMPERAN [Concomitant]
     Dosage: UNK
     Dates: start: 20140209
  10. ALDACTONE [Concomitant]
     Dosage: UNK
  11. GAVISCON [Concomitant]
     Dosage: UNK
  12. IMOVANE [Concomitant]
     Dosage: UNK
  13. LEXOMIL [Concomitant]
     Dosage: UNK
  14. AVODART [Concomitant]
  15. ERYTHROMYCIN [Concomitant]

REACTIONS (2)
  - Thrombocytopenia [Recovered/Resolved]
  - Anaemia [Unknown]
